FAERS Safety Report 21157065 (Version 2)
Quarter: 2022Q3

REPORT INFORMATION
  Report Type: Spontaneous
  Country: GB (occurrence: GB)
  Receive Date: 20220801
  Receipt Date: 20220819
  Transmission Date: 20221027
  Serious: No
  Sender: FDA-Public Use
  Company Number: GB-DSJP-DSE-2022-126708

PATIENT
  Sex: Female

DRUGS (1)
  1. ENHERTU [Suspect]
     Active Substance: FAM-TRASTUZUMAB DERUXTECAN-NXKI
     Indication: Breast cancer metastatic
     Dosage: UNK (DOSE IS LOWER THAN 5.4 MG/KG)
     Route: 065

REACTIONS (2)
  - Intentional underdose [Not Recovered/Not Resolved]
  - No adverse event [Unknown]
